FAERS Safety Report 9138105 (Version 2)
Quarter: 2013Q2

REPORT INFORMATION
  Report Type: Report from Study
  Country: US (occurrence: US)
  Receive Date: 20130304
  Receipt Date: 20130506
  Transmission Date: 20140414
  Serious: Yes (Other)
  Sender: FDA-Public Use
  Company Number: US-ABBOTT-12P-163-1005507-00

PATIENT
  Age: 30 Year
  Sex: Female

DRUGS (4)
  1. HUMIRA [Suspect]
     Indication: CROHN^S DISEASE
     Dates: start: 20121007, end: 20121007
  2. HUMIRA [Suspect]
     Dates: start: 20121021, end: 20121021
  3. HUMIRA [Suspect]
  4. PRENATAL VITAMINS [Concomitant]
     Indication: PRODUCT USED FOR UNKNOWN INDICATION
     Route: 048

REACTIONS (7)
  - Abortion spontaneous [Unknown]
  - Crohn^s disease [Unknown]
  - Decreased appetite [Unknown]
  - Pain [Unknown]
  - Faeces pale [Unknown]
  - Diarrhoea [Unknown]
  - Inappropriate schedule of drug administration [Unknown]
